FAERS Safety Report 7751492-1 (Version None)
Quarter: 2011Q3

REPORT INFORMATION
  Report Type: 
  Country: None (occurrence: None)
  Receive Date: 20110914
  Receipt Date: 20110831
  Transmission Date: 20111222
  Serious: Yes (Hospitalization)
  Sender: FDA-Public Use
  Company Number: PHHY2011JP77708

PATIENT
  Sex: Male
  Weight: 50 kg

DRUGS (2)
  1. DIOVAN [Suspect]
     Indication: HYPERTENSION
     Dosage: 80 MG, ONCE DAILY
     Route: 048
     Dates: start: 20090310, end: 20091105
  2. DIOVAN [Suspect]
     Dosage: 40 MG,
     Route: 048
     Dates: start: 20091106, end: 20091204

REACTIONS (1)
  - PERNICIOUS ANAEMIA [None]
